FAERS Safety Report 4344681-X (Version None)
Quarter: 2004Q2

REPORT INFORMATION
  Report Type: 
  Country: None (occurrence: None)
  Receive Date: 20040419
  Receipt Date: 20020416
  Transmission Date: 20050107
  Serious: Yes (Hospitalization)
  Sender: FDA-Public Use
  Company Number: A039989

PATIENT
  Age: 79 Year
  Sex: Female

DRUGS (3)
  1. DOXAZOSIN [Suspect]
     Indication: HYPERTENSION
     Dosage: 2 MG, ORAL
     Route: 048
  2. CISAPRIDE [Suspect]
     Indication: GASTRITIS
     Dosage: 7.5 MG, DAILY, ORAL
     Route: 048
     Dates: start: 19970101
  3. INDAPAMIDE [Concomitant]

REACTIONS (12)
  - BLOOD PRESSURE SYSTOLIC INCREASED [None]
  - DIZZINESS [None]
  - ECHOCARDIOGRAM ABNORMAL [None]
  - ELECTROCARDIOGRAM QT CORRECTED INTERVAL PROLONGED [None]
  - ELECTROCARDIOGRAM QT PROLONGED [None]
  - HEART RATE DECREASED [None]
  - HYPOKALAEMIA [None]
  - NAUSEA [None]
  - TORSADE DE POINTES [None]
  - VENTRICULAR EXTRASYSTOLES [None]
  - VENTRICULAR HYPERTROPHY [None]
  - VENTRICULAR TACHYCARDIA [None]
